FAERS Safety Report 15225474 (Version 2)
Quarter: 2018Q3

REPORT INFORMATION
  Report Type: Report from Study
  Country: FR (occurrence: FR)
  Receive Date: 20180801
  Receipt Date: 20180813
  Transmission Date: 20181010
  Serious: Yes (Other)
  Sender: FDA-Public Use
  Company Number: FR-ROCHE-2160512

PATIENT

DRUGS (2)
  1. ATEZOLIZUMAB. [Suspect]
     Active Substance: ATEZOLIZUMAB
     Indication: LYMPHOMA
     Dosage: 1200 MG ON DAY 2 OF EACH 21?DAY CYCLE DURING 18 MONTHS (24 CYCLES)
     Route: 042
  2. OBINUTUZUMAB. [Suspect]
     Active Substance: OBINUTUZUMAB
     Indication: LYMPHOMA
     Dosage: 1000 MG ON DAY 1, DAY 8 AND DAY 15 OF CYCLE 1 AND EACH DAY 1 FROM CYCLE 2 TO CYCLE 8
     Route: 042

REACTIONS (2)
  - Infusion related reaction [Recovered/Resolved]
  - Cytokine release syndrome [Recovered/Resolved]

NARRATIVE: CASE EVENT DATE: 20180314
